FAERS Safety Report 10996266 (Version 2)
Quarter: 2015Q2

REPORT INFORMATION
  Report Type: Spontaneous
  Country: PS (occurrence: PS)
  Receive Date: 20150408
  Receipt Date: 20150412
  Transmission Date: 20150821
  Serious: Yes (Other)
  Sender: FDA-Public Use
  Company Number: PS-AMGEN-PSESP2015033202

PATIENT
  Age: 45 Year
  Sex: Female

DRUGS (1)
  1. ENBREL [Suspect]
     Active Substance: ETANERCEPT
     Indication: RHEUMATOID ARTHRITIS
     Dosage: 125 MG/ML, WEEKLY
     Route: 058
     Dates: start: 201501, end: 20150331

REACTIONS (1)
  - Gastric cancer [Unknown]
